FAERS Safety Report 23687946 (Version 1)
Quarter: 2024Q1

REPORT INFORMATION
  Report Type: Spontaneous
  Country: US (occurrence: US)
  Receive Date: 20240329
  Receipt Date: 20240329
  Transmission Date: 20240410
  Serious: No
  Sender: FDA-Public Use
  Company Number: US-ABBVIE-5694810

PATIENT
  Sex: Male

DRUGS (1)
  1. LINACLOTIDE [Suspect]
     Active Substance: LINACLOTIDE
     Indication: Faecaloma
     Route: 048

REACTIONS (2)
  - Off label use [Unknown]
  - Diarrhoea [Unknown]
